FAERS Safety Report 10687359 (Version 27)
Quarter: 2019Q2

REPORT INFORMATION
  Report Type: Report from Study
  Country: CA (occurrence: CA)
  Receive Date: 20150102
  Receipt Date: 20190613
  Transmission Date: 20190711
  Serious: Yes (Hospitalization, Other)
  Sender: FDA-Public Use
  Company Number: PHHY2013CA130024

PATIENT
  Age: 55 Year
  Sex: Female

DRUGS (18)
  1. LORAZEPAM. [Suspect]
     Active Substance: LORAZEPAM
     Indication: PRODUCT USED FOR UNKNOWN INDICATION
     Dosage: 1 MG, TID
     Route: 065
  2. FUROSEMIDE. [Suspect]
     Active Substance: FUROSEMIDE
     Indication: DIURETIC THERAPY
     Dosage: 20 MG, QD FOR 1 MONTH
     Route: 048
     Dates: start: 20181015
  3. FLECAINIDE [Concomitant]
     Active Substance: FLECAINIDE
     Indication: PRODUCT USED FOR UNKNOWN INDICATION
     Dosage: 50 MG, BID
     Route: 048
  4. ASPIRIN. [Concomitant]
     Active Substance: ASPIRIN
     Indication: PRODUCT USED FOR UNKNOWN INDICATION
     Dosage: 81 MG, QD
     Route: 048
  5. INDAPAMIDE. [Suspect]
     Active Substance: INDAPAMIDE
     Indication: PRODUCT USED FOR UNKNOWN INDICATION
     Dosage: 2.5 MG, QD
     Route: 065
  6. TYLENOL WITH CODEINE [Concomitant]
     Active Substance: ACETAMINOPHEN\CODEINE PHOSPHATE
     Indication: PRODUCT USED FOR UNKNOWN INDICATION
     Dosage: UNK, PRN
     Route: 065
  7. ELTROXIN [Concomitant]
     Active Substance: LEVOTHYROXINE
     Indication: PRODUCT USED FOR UNKNOWN INDICATION
     Dosage: 0.1 MG, QD
     Route: 065
  8. ATENOLOL. [Suspect]
     Active Substance: ATENOLOL
     Indication: PRODUCT USED FOR UNKNOWN INDICATION
     Dosage: 100 MG, QD
     Route: 065
  9. LIPITOR [Concomitant]
     Active Substance: ATORVASTATIN CALCIUM
     Indication: PRODUCT USED FOR UNKNOWN INDICATION
     Dosage: 20 MG, QD
     Route: 065
  10. TEMAZEPAM. [Concomitant]
     Active Substance: TEMAZEPAM
     Indication: PRODUCT USED FOR UNKNOWN INDICATION
     Dosage: 20 MG, UNK
     Route: 065
  11. SOMAVERT [Concomitant]
     Active Substance: PEGVISOMANT
     Indication: PRODUCT USED FOR UNKNOWN INDICATION
     Route: 065
  12. SANDOSTATIN LAR DEPOT [Suspect]
     Active Substance: OCTREOTIDE ACETATE
     Dosage: 20 MG, QMO (EVERY 4 WEEKS)
     Route: 030
     Dates: start: 20160502
  13. RAMIPRIL. [Suspect]
     Active Substance: RAMIPRIL
     Indication: PRODUCT USED FOR UNKNOWN INDICATION
     Dosage: 10 MG, QD
     Route: 065
  14. PREDNISONE. [Concomitant]
     Active Substance: PREDNISONE
     Indication: PRODUCT USED FOR UNKNOWN INDICATION
     Dosage: 5 MG, QD
     Route: 065
  15. SANDOSTATIN LAR DEPOT [Suspect]
     Active Substance: OCTREOTIDE ACETATE
     Indication: ACROMEGALY
     Dosage: 30 MG, QMO (EVERY 4 WEEKS)
     Route: 030
     Dates: start: 20050609
  16. SANDOSTATIN LAR DEPOT [Suspect]
     Active Substance: OCTREOTIDE ACETATE
     Dosage: 30 MG, EVERY 2 WEEKS
     Route: 030
     Dates: start: 20140429
  17. NITROFURANTOIN. [Concomitant]
     Active Substance: NITROFURANTOIN
     Indication: PRODUCT USED FOR UNKNOWN INDICATION
     Dosage: 50 MG, QD
     Route: 065
  18. XARELTO [Concomitant]
     Active Substance: RIVAROXABAN
     Indication: PRODUCT USED FOR UNKNOWN INDICATION
     Dosage: 1 DF, QD
     Route: 048
     Dates: start: 2018

REACTIONS (74)
  - Cough [Not Recovered/Not Resolved]
  - Arthritis [Unknown]
  - Joint swelling [Unknown]
  - Contusion [Unknown]
  - Hyperhidrosis [Unknown]
  - Heart rate decreased [Unknown]
  - Needle issue [Unknown]
  - Pain [Recovering/Resolving]
  - Product use issue [Unknown]
  - Dehydration [Unknown]
  - Injection site discomfort [Unknown]
  - Cardiac failure [Unknown]
  - Peripheral swelling [Unknown]
  - Urinary tract infection [Unknown]
  - Limb discomfort [Unknown]
  - Pain [Recovered/Resolved]
  - Haemorrhage [Unknown]
  - Musculoskeletal pain [Unknown]
  - Urinary incontinence [Unknown]
  - Urine abnormality [Unknown]
  - Sensitisation [Unknown]
  - Thyroid disorder [Unknown]
  - Pneumonia [Unknown]
  - Blood pressure increased [Unknown]
  - Malaise [Unknown]
  - Mass [Recovering/Resolving]
  - Jaundice [Not Recovered/Not Resolved]
  - Abdominal discomfort [Unknown]
  - Blood glucose decreased [Unknown]
  - Decreased appetite [Unknown]
  - Injection site bruising [Unknown]
  - Injection site mass [Unknown]
  - Pyrexia [Recovering/Resolving]
  - Proctalgia [Unknown]
  - Polyp [Unknown]
  - Atrial fibrillation [Unknown]
  - Exostosis [Unknown]
  - Frustration tolerance decreased [Unknown]
  - Underdose [Unknown]
  - Bone pain [Unknown]
  - Back pain [Unknown]
  - Gallbladder disorder [Unknown]
  - Full blood count decreased [Unknown]
  - Pain in extremity [Unknown]
  - Blood pressure systolic increased [Unknown]
  - Haemoglobin decreased [Unknown]
  - Feeling abnormal [Unknown]
  - Muscular weakness [Unknown]
  - Headache [Recovered/Resolved]
  - Abdominal pain upper [Unknown]
  - Duodenal ulcer [Unknown]
  - Postoperative wound infection [Recovered/Resolved]
  - Lung neoplasm malignant [Unknown]
  - Intestinal haemorrhage [Unknown]
  - Arthralgia [Recovering/Resolving]
  - Peripheral coldness [Unknown]
  - Furuncle [Unknown]
  - Gait disturbance [Unknown]
  - Bladder disorder [Unknown]
  - Hypoaesthesia [Unknown]
  - Injection site pain [Unknown]
  - Dyspnoea [Recovering/Resolving]
  - Diabetes mellitus [Unknown]
  - Dysuria [Unknown]
  - Stress [Unknown]
  - Fatigue [Unknown]
  - Dizziness [Recovered/Resolved]
  - Change of bowel habit [Unknown]
  - Helicobacter infection [Unknown]
  - Rectal polyp [Unknown]
  - Musculoskeletal discomfort [Unknown]
  - Weight decreased [Unknown]
  - Bone disorder [Unknown]
  - Urine odour abnormal [Unknown]

NARRATIVE: CASE EVENT DATE: 20050609
